FAERS Safety Report 4321435-1 (Version None)
Quarter: 2004Q1

REPORT INFORMATION
  Report Type: 
  Country: None (occurrence: None)
  Receive Date: 20040322
  Receipt Date: 20030425
  Transmission Date: 20041129
  Serious: No
  Sender: FDA-Public Use
  Company Number: US-BRISTOL-MYERS SQUIBB COMPANY-12273058

PATIENT
  Age: 51 Year
  Sex: Female
  Weight: 91 kg

DRUGS (2)
  1. VAGISTAT-1 [Suspect]
     Indication: VAGINAL MYCOSIS
     Route: 067
     Dates: start: 20030424, end: 20030424
  2. ANTIBIOTICS [Concomitant]
     Indication: PHARYNGOLARYNGEAL PAIN

REACTIONS (3)
  - GENITAL BURNING SENSATION [None]
  - GENITALIA EXTERNAL PAINFUL [None]
  - OEDEMA GENITAL [None]
